FAERS Safety Report 6885276-3 (Version None)
Quarter: 2010Q3

REPORT INFORMATION
  Report Type: 
  Country: None (occurrence: None)
  Receive Date: 20100729
  Receipt Date: 20100729
  Transmission Date: 20110219
  Serious: No
  Sender: FDA-Public Use
  Company Number: None

PATIENT
  Sex: Male
  Weight: 114.3 kg

DRUGS (1)
  1. TOCILIZUMAB 20 MG/ML GENENTECH, INC [Suspect]
     Indication: JUVENILE ARTHRITIS
     Dosage: 400 MG 1X IV DRIP
     Route: 041
     Dates: start: 20100712, end: 20100712

REACTIONS (4)
  - CHEST DISCOMFORT [None]
  - DIZZINESS [None]
  - HYPERTENSION [None]
  - INFUSION RELATED REACTION [None]
